FAERS Safety Report 8818794 (Version 1)
Quarter: 2012Q4

REPORT INFORMATION
  Report Type: Spontaneous
  Country: US (occurrence: None)
  Receive Date: 20121005
  Receipt Date: 20121005
  Transmission Date: 20130627
  Serious: Yes (Life-Threatening, Disabling, Other)
  Sender: FDA-Public Use
  Company Number: None

PATIENT
  Age: 42 Year
  Sex: Female
  Weight: 55.79 kg

DRUGS (4)
  1. STEROID INJECTION POSSIBLE METHYLPREDNISOLONE [Suspect]
     Dates: start: 20120715, end: 20121004
  2. STEROID INJECTION POSSIBLE METHYLPREDNISOLONE [Suspect]
     Dates: start: 20120715, end: 20121004
  3. STEROID INJECTION POSSIBLE METHYLPREDNISOLONE [Suspect]
     Dates: start: 20120802, end: 20121004
  4. STEROID INJECTION POSSIBLE METHYLPREDNISOLONE [Suspect]
     Dates: start: 20120802, end: 20121004

REACTIONS (13)
  - Bedridden [None]
  - Weight decreased [None]
  - Malaise [None]
  - Cardiovascular disorder [None]
  - Loss of consciousness [None]
  - Vomiting [None]
  - Hyperhidrosis [None]
  - Chills [None]
  - Dizziness [None]
  - Headache [None]
  - Pain [None]
  - Product quality issue [None]
  - Pyrexia [None]
